FAERS Safety Report 9003913 (Version 2)
Quarter: 2013Q1

REPORT INFORMATION
  Report Type: Report from Study
  Country: US (occurrence: US)
  Receive Date: 20130108
  Receipt Date: 20130215
  Transmission Date: 20140127
  Serious: Yes (Hospitalization, Other)
  Sender: FDA-Public Use
  Company Number: US-ABBOTT-13P-163-1031214-00

PATIENT
  Age: 77 Year
  Sex: Male

DRUGS (31)
  1. HUMIRA [Suspect]
     Indication: RHEUMATOID ARTHRITIS
     Dates: start: 201112
  2. STEROID [Suspect]
     Indication: PRODUCT USED FOR UNKNOWN INDICATION
  3. BABY ASPIRIN [Concomitant]
     Indication: PRODUCT USED FOR UNKNOWN INDICATION
     Dosage: 81 MG DAILY
  4. DOXAZOSIN [Concomitant]
     Indication: BLOOD PRESSURE
  5. DOXAZOSIN [Concomitant]
     Indication: PROSTATIC DISORDER
  6. LISINOPRIL [Concomitant]
     Indication: PRODUCT USED FOR UNKNOWN INDICATION
     Dosage: 20 MG DAILY
  7. BYSTOLIC [Concomitant]
     Indication: CARDIOVASCULAR DISORDER
  8. PREDNISONE [Concomitant]
     Indication: PRODUCT USED FOR UNKNOWN INDICATION
     Dosage: 10 MG DAILY
  9. PREDNISONE [Concomitant]
  10. PREDNISONE [Concomitant]
     Dosage: TAPERED DOWN
  11. PREDNISONE [Concomitant]
     Dosage: MAINTENANCE DOSE
  12. NASONEX [Concomitant]
     Indication: ASTHMA
     Dosage: 2 PUFFS IN EACH NOSTRIL
     Route: 045
  13. NASONEX [Concomitant]
     Indication: HYPERSENSITIVITY
  14. CALTRATE WITH VITAMIN D [Concomitant]
     Indication: PRODUCT USED FOR UNKNOWN INDICATION
  15. HYDROCODONE [Concomitant]
     Indication: PAIN
     Dosage: 7.5/500 MG 1 OR NONE DAILY AS NEEDED
  16. ZYRTEC [Concomitant]
     Indication: PRODUCT USED FOR UNKNOWN INDICATION
     Dosage: 10 MG DAILY
  17. VITAMIN B-12 [Concomitant]
     Indication: PRODUCT USED FOR UNKNOWN INDICATION
     Dosage: 1000 MG DAILY
  18. PROLIA [Concomitant]
     Indication: OSTEOPOROSIS
  19. SYMBICORT [Concomitant]
     Indication: COUGH
  20. SYMBICORT [Concomitant]
     Indication: PULMONARY CONGESTION
  21. SYMBICORT [Concomitant]
     Indication: ASTHMA
  22. SYMBICORT [Concomitant]
     Indication: HYPERSENSITIVITY
  23. PEPCID [Concomitant]
     Indication: PRODUCT USED FOR UNKNOWN INDICATION
  24. PLAVIX [Concomitant]
     Indication: PRODUCT USED FOR UNKNOWN INDICATION
  25. CHOLESTYRAMINE COX [Concomitant]
     Indication: PRODUCT USED FOR UNKNOWN INDICATION
  26. ARAVA [Concomitant]
     Indication: PRODUCT USED FOR UNKNOWN INDICATION
     Dates: end: 20121219
  27. ARAVA [Concomitant]
     Dosage: 1/2 TAB MON, WED, FRI
     Dates: start: 20121220
  28. SPIRIVA [Concomitant]
     Indication: COUGH
     Dosage: EVERY DAY
  29. SPIRIVA [Concomitant]
     Indication: PULMONARY CONGESTION
  30. SPIRIVA [Concomitant]
     Indication: ASTHMA
  31. SPIRIVA [Concomitant]
     Indication: HYPERSENSITIVITY

REACTIONS (14)
  - Intervertebral disc protrusion [Not Recovered/Not Resolved]
  - Back pain [Unknown]
  - Lung infection [Unknown]
  - Gastric disorder [Unknown]
  - Diarrhoea [Unknown]
  - Hypophagia [Unknown]
  - Fluid intake reduced [Unknown]
  - Respiratory tract infection bacterial [Unknown]
  - Weight decreased [Unknown]
  - Feeling abnormal [Unknown]
  - Arthralgia [Unknown]
  - Joint swelling [Unknown]
  - Rheumatoid vasculitis [Unknown]
  - Disease complication [Unknown]
